FAERS Safety Report 15551403 (Version 1)
Quarter: 2018Q4

REPORT INFORMATION
  Report Type: Spontaneous
  Country: TR (occurrence: TR)
  Receive Date: 20181025
  Receipt Date: 20181025
  Transmission Date: 20190205
  Serious: Yes (Other)
  Sender: FDA-Public Use
  Company Number: TR-MYLANLABS-2018M1078274

PATIENT
  Age: 43 Year
  Sex: Male

DRUGS (3)
  1. DICLOFENAC [Suspect]
     Active Substance: DICLOFENAC
     Indication: GASTROINTESTINAL DISORDER
     Dosage: TWO EMPTY BLISTER PACKS OF DICLOFENAC POTASSIUM 50MG CONTAINING 10 TABLETS EACH (TOTAL DICLOFENAC...
     Route: 048
  2. PANTOPRAZOLE [Suspect]
     Active Substance: PANTOPRAZOLE
     Indication: GASTROINTESTINAL DISORDER
     Dosage: TWO EMPTY BLISTER PACKS OF PANTOPRAZOLE 40MG CONTAINING 14 TABLETS EACH (TOTAL DOMPERIDONE DOSE: ...
     Route: 048
  3. DOMPERIDONE [Suspect]
     Active Substance: DOMPERIDONE
     Indication: GASTROINTESTINAL DISORDER
     Dosage: THREE EMPTY BLISTER PACKS OF DOMPERIDONE 10MG CONTAINING 10 TABLETS EACH (TOTAL DOMPERIDONE DOSE:...
     Route: 048

REACTIONS (2)
  - Suicide attempt [Unknown]
  - Intentional overdose [Unknown]
